FAERS Safety Report 7473954-7 (Version None)
Quarter: 2011Q2

REPORT INFORMATION
  Report Type: 
  Country: None (occurrence: None)
  Receive Date: 20110511
  Receipt Date: 20091113
  Transmission Date: 20111010
  Serious: Yes (Death, Other)
  Sender: FDA-Public Use
  Company Number: US-BAYER-200939791NA

PATIENT
  Age: 80 Year
  Sex: Male
  Weight: 90.703 kg

DRUGS (20)
  1. TRASYLOL [Suspect]
     Indication: CORONARY ARTERY BYPASS
     Dosage: TEST DOSE 1ML, 200ML BYPASS PRIME, LOADING DOSE 200ML THEN 50MLHR/ INFUSION
     Route: 042
     Dates: start: 20001018, end: 20001018
  2. PROTAMINE SULFATE [Concomitant]
     Dosage: 375 MG
     Dates: start: 20001018, end: 20001018
  3. PLASMA [Concomitant]
  4. NITROGLYCERIN [Concomitant]
     Indication: CHEST PAIN
     Dosage: 0.4 MG, PRN
     Route: 060
  5. MANNITOL [Concomitant]
     Dosage: 25 GRAM
     Dates: start: 20001018, end: 20001018
  6. MINIPRESS [Concomitant]
     Indication: HYPERTENSION
     Dosage: 2 MG, BID
     Route: 048
  7. ZOCOR [Concomitant]
     Indication: HYPERCHOLESTEROLAEMIA
     Dosage: 40 MG, HS
     Route: 048
  8. NIPRIDE [Concomitant]
     Dosage: UNK
     Dates: start: 20001018, end: 20001018
  9. DOPAMINE HCL [Concomitant]
     Dosage: UNK
     Dates: start: 20001018, end: 20001018
  10. HEPARIN [Concomitant]
     Dosage: 27000 UNITS
     Dates: start: 20001018, end: 20001018
  11. RED BLOOD CELLS [Concomitant]
  12. LOPRESSOR [Concomitant]
     Dosage: 5 MG, BID
     Route: 048
     Dates: start: 20000922
  13. LASIX [Concomitant]
     Indication: HYPERTENSION
     Dosage: 120 MG
  14. NORVASC [Concomitant]
     Indication: HYPERTENSION
     Dosage: 5 MG, QD
     Route: 048
     Dates: start: 20000918
  15. FENTANYL [Concomitant]
     Dosage: 1 MG
  16. ACETYLSALICYLIC ACID SRT [Concomitant]
     Indication: ANTICOAGULANT THERAPY
     Dosage: 325 MG, QD
     Route: 048
  17. LOSARTAN POTASSIUM AND HYDROCHLOROTHIAZIDE [Concomitant]
  18. ISORDIL [Concomitant]
     Dosage: 10 MG, TID
     Dates: start: 20001011
  19. INDOCIN [Concomitant]
     Indication: GOUT
  20. VASOPRESSIN [VASOPRESSIN] [Concomitant]
     Dosage: UNK
     Dates: start: 20001018, end: 20001018

REACTIONS (12)
  - DEATH [None]
  - RENAL IMPAIRMENT [None]
  - ANXIETY [None]
  - PAIN [None]
  - RENAL FAILURE [None]
  - EMOTIONAL DISTRESS [None]
  - UNEVALUABLE EVENT [None]
  - RENAL INJURY [None]
  - STRESS [None]
  - INJURY [None]
  - FEAR [None]
  - ANHEDONIA [None]
